FAERS Safety Report 8594038-0 (Version None)
Quarter: 2012Q3

REPORT INFORMATION
  Report Type: 
  Country: None (occurrence: None)
  Receive Date: 20120814
  Receipt Date: 20120808
  Transmission Date: 20120928
  Serious: Yes (Other)
  Sender: FDA-Public Use
  Company Number: JP-VERTEX PHARMACEUTICALS INC.-AE-2012-012035

PATIENT
  Age: 68 Year
  Sex: Female

DRUGS (18)
  1. TELAVIC (TELAPREVIR) [Suspect]
     Indication: HEPATITIS C
     Route: 048
     Dates: start: 20120508, end: 20120521
  2. TELAVIC (TELAPREVIR) [Suspect]
     Route: 048
     Dates: start: 20120522, end: 20120731
  3. RIBAVIRIN [Suspect]
     Indication: HEPATITIS C
     Route: 048
     Dates: start: 20120508, end: 20120611
  4. PEGINTERFERON ALFA-2A [Suspect]
     Route: 058
     Dates: start: 20120522, end: 20120605
  5. PEGINTERFERON ALFA-2A [Suspect]
     Dates: start: 20120612, end: 20120612
  6. JANUVIA [Concomitant]
     Route: 048
  7. RIBAVIRIN [Suspect]
     Route: 048
     Dates: start: 20120619
  8. MYSER OINTMENT [Concomitant]
  9. ALLOPURINOL [Concomitant]
     Dates: start: 20120508
  10. PEGINTERFERON ALFA-2A [Suspect]
     Indication: HEPATITIS C
     Route: 058
     Dates: start: 20120508, end: 20120515
  11. PEGINTERFERON ALFA-2A [Suspect]
     Route: 058
     Dates: start: 20120619
  12. RESTAMIN [Concomitant]
     Route: 061
     Dates: start: 20120511
  13. ACTOS [Concomitant]
     Route: 048
  14. RIBAVIRIN [Suspect]
     Route: 048
     Dates: start: 20120612, end: 20120618
  15. URSO 250 [Concomitant]
     Route: 048
     Dates: end: 20120523
  16. GLIMEPIRIDE [Concomitant]
  17. MIGLITOL [Concomitant]
  18. VALSARTAN  AND HYDROCHLOROTHIAZIDE [Concomitant]
     Dates: end: 20120714

REACTIONS (10)
  - HAEMOGLOBIN DECREASED [None]
  - PYREXIA [None]
  - NEUTROPENIA [None]
  - COUGH [None]
  - PLATELET COUNT DECREASED [None]
  - DIARRHOEA [None]
  - ABDOMINAL DISCOMFORT [None]
  - AGRANULOCYTOSIS [None]
  - DIZZINESS POSTURAL [None]
  - BLOOD URIC ACID DECREASED [None]
